FAERS Safety Report 14712008 (Version 2)
Quarter: 2018Q2

REPORT INFORMATION
  Report Type: Report from Study
  Country: None (occurrence: CH)
  Receive Date: 20180404
  Receipt Date: 20180408
  Transmission Date: 20180711
  Serious: No
  Sender: FDA-Public Use
  Company Number: CH-ABBVIE-18K-151-2310024-00

PATIENT
  Sex: Female

DRUGS (4)
  1. DUODOPA [Suspect]
     Active Substance: CARBIDOPA\LEVODOPA
     Indication: PRODUCT USED FOR UNKNOWN INDICATION
     Dosage: MORNING DOSE 7.0ML?CONTINUOUS RATE 2.2ML/H?EXTRA DOSE 2.4ML?16H THERAPY
     Route: 050
     Dates: start: 20150803, end: 20150810
  2. DUODOPA [Suspect]
     Active Substance: CARBIDOPA\LEVODOPA
     Dosage: MORNING DOSE 7.0ML?CONTINUOUS RATE 2.2ML/H?EXTRA DOSE 2.4ML?16H THERAPY
     Route: 050
     Dates: start: 201803, end: 201803
  3. DUODOPA [Suspect]
     Active Substance: CARBIDOPA\LEVODOPA
     Dosage: MORNING DOSE 7.0ML?CONTINUOUS RATE 2.2ML/H?EXTRA DOSE 2.4ML?16H THERAPY
     Route: 050
     Dates: start: 20150810, end: 201803
  4. DUODOPA [Suspect]
     Active Substance: CARBIDOPA\LEVODOPA
     Dosage: MORNING DOSE 7.0ML?CONTINUOUS RATE 2.2ML/H?EXTRA DOSE 2.4ML?16H THERAPY
     Route: 050
     Dates: start: 201803

REACTIONS (2)
  - Incorrect route of drug administration [Recovered/Resolved]
  - Device occlusion [Recovered/Resolved]
